FAERS Safety Report 9704201 (Version 1)
Quarter: 2013Q4

REPORT INFORMATION
  Report Type: Spontaneous
  Country: None (occurrence: None)
  Receive Date: 20131121
  Receipt Date: 20131121
  Transmission Date: 20140711
  Serious: Yes (Other)
  Sender: FDA-Public Use
  Company Number: None

PATIENT
  Age: 32 Year
  Sex: Male
  Weight: 83.92 kg

DRUGS (1)
  1. LAMISIL [Suspect]
     Route: 048
     Dates: start: 20131101, end: 20131120

REACTIONS (2)
  - Rash [None]
  - Macule [None]
